FAERS Safety Report 4519092-4 (Version None)
Quarter: 2004Q4

REPORT INFORMATION
  Report Type: 
  Country: None (occurrence: None)
  Receive Date: 20041206
  Receipt Date: 20041029
  Transmission Date: 20050328
  Serious: Yes (Life-Threatening, Hospitalization)
  Sender: FDA-Public Use
  Company Number: US-BRISTOL-MYERS SQUIBB COMPANY-12750352

PATIENT
  Age: 63 Year
  Sex: Female
  Weight: 63 kg

DRUGS (9)
  1. ERBITUX [Suspect]
     Indication: COLORECTAL CANCER METASTATIC
     Dosage: 1ST INFUSION, 664 MG; INFUSION STOPPED AFTER 7 MINUTES
     Route: 042
     Dates: start: 20041028, end: 20041028
  2. BENADRYL [Concomitant]
     Indication: PREMEDICATION
     Route: 042
     Dates: start: 20041028, end: 20041028
  3. DECADRON [Concomitant]
     Indication: PREMEDICATION
     Route: 042
     Dates: start: 20041028, end: 20041028
  4. ANZEMET [Concomitant]
     Indication: PREMEDICATION
     Route: 042
     Dates: start: 20041028, end: 20041028
  5. SYNTHROID [Concomitant]
  6. IMODIUM [Concomitant]
  7. ATENOLOL [Concomitant]
  8. COUMADIN [Concomitant]
  9. OMEPRAZOLE [Concomitant]

REACTIONS (6)
  - CARDIAC ARREST [None]
  - COMA [None]
  - PRURITUS [None]
  - RESPIRATORY DISORDER [None]
  - RESTLESSNESS [None]
  - URTICARIA [None]
